FAERS Safety Report 9155222 (Version 4)
Quarter: 2013Q2

REPORT INFORMATION
  Report Type: Report from Study
  Country: BE (occurrence: BE)
  Receive Date: 20130311
  Receipt Date: 20130503
  Transmission Date: 20140414
  Serious: Yes (Hospitalization)
  Sender: FDA-Public Use
  Company Number: BE-ROCHE-1199781

PATIENT
  Age: 74 Year
  Sex: Female

DRUGS (13)
  1. PERTUZUMAB [Suspect]
     Indication: BREAST CANCER
     Route: 042
     Dates: start: 20130115
  2. PERTUZUMAB [Suspect]
     Dosage: LAST DOSE PRIOR TO SAE: 26/FEB/2013
     Route: 042
  3. TRASTUZUMAB [Suspect]
     Indication: BREAST CANCER
     Route: 042
     Dates: start: 20130115
  4. TRASTUZUMAB [Suspect]
     Dosage: LAST DOSE PRIOR TO SAE: 26/FEB/2013
     Route: 042
  5. PACLITAXEL [Suspect]
     Indication: BREAST CANCER
     Dosage: LAST DOSE PRIOR TO SAE: 26/FEB/2013
     Route: 042
     Dates: start: 20130115, end: 20130226
  6. PACLITAXEL [Suspect]
     Route: 042
     Dates: start: 20130312
  7. LOSEC (BELGIUM) [Concomitant]
     Route: 065
  8. EMCONCOR [Concomitant]
     Route: 065
  9. CONTRAMAL [Concomitant]
     Route: 065
  10. UNITRANXENE [Concomitant]
     Route: 065
  11. LORMETAZEPAM [Concomitant]
     Route: 065
  12. TRAZOLAN [Concomitant]
     Route: 065
  13. ZYRTEC [Concomitant]
     Route: 065
     Dates: start: 20130114

REACTIONS (1)
  - Ataxia [Recovered/Resolved]
